FAERS Safety Report 9157877 (Version 4)
Quarter: 2013Q2

REPORT INFORMATION
  Report Type: Report from Study
  Country: US (occurrence: US)
  Receive Date: 20130312
  Receipt Date: 20130417
  Transmission Date: 20140414
  Serious: Yes (Death)
  Sender: FDA-Public Use
  Company Number: US-PURDUE-USA-2013-0099691

PATIENT
  Sex: Male

DRUGS (5)
  1. OXYCONTIN (NDA 22-272) [Suspect]
     Indication: CANCER PAIN
     Dosage: 20 MG, Q8H
     Route: 048
  2. OXYCONTIN (NDA 22-272) [Suspect]
     Indication: HERNIA
     Dosage: 20 MG, Q12H
     Route: 048
     Dates: start: 20130121
  3. OXYCONTIN (NDA 22-272) [Suspect]
     Dosage: 30 MG, Q12H
     Route: 048
  4. OXYCONTIN (NDA 22-272) [Suspect]
     Dosage: 60 MG, Q12H
     Route: 048
  5. DILAUDID TABLET [Suspect]
     Indication: BREAKTHROUGH PAIN
     Dosage: 4 MG, PRN
     Dates: start: 20130121

REACTIONS (4)
  - Death [Fatal]
  - General physical health deterioration [Unknown]
  - Drug ineffective [Not Recovered/Not Resolved]
  - Inadequate analgesia [Not Recovered/Not Resolved]
